FAERS Safety Report 14497627 (Version 7)
Quarter: 2019Q4

REPORT INFORMATION
  Report Type: Spontaneous
  Country: JP (occurrence: JP)
  Receive Date: 20180207
  Receipt Date: 20191008
  Transmission Date: 20200122
  Serious: Yes (Other)
  Sender: FDA-Public Use
  Company Number: JP-CELGENEUS-JPN-20180200058

PATIENT
  Age: 8 Decade
  Sex: Male

DRUGS (7)
  1. FLIVAS [Suspect]
     Active Substance: NAFTOPIDIL
     Indication: BENIGN PROSTATIC HYPERPLASIA
     Route: 065
  2. MEVALOTIN [Concomitant]
     Active Substance: PRAVASTATIN SODIUM
     Indication: PRODUCT USED FOR UNKNOWN INDICATION
     Dosage: UNKNOWN
     Route: 048
  3. OTEZLA [Suspect]
     Active Substance: APREMILAST
     Dosage: 60 MILLIGRAM
     Route: 048
     Dates: start: 2017
  4. OTEZLA [Suspect]
     Active Substance: APREMILAST
     Dosage: UNKNOWN
     Route: 048
     Dates: end: 201908
  5. ALLELOCK [Concomitant]
     Active Substance: OLOPATADINE HYDROCHLORIDE
     Indication: PSORIASIS
     Dosage: UNKNOWN
     Route: 048
  6. DOVOBET [Concomitant]
     Active Substance: BETAMETHASONE\CALCIPOTRIENE
     Indication: PRODUCT USED FOR UNKNOWN INDICATION
     Dosage: UNKNOWN
     Route: 062
  7. OTEZLA [Suspect]
     Active Substance: APREMILAST
     Indication: PSORIASIS
     Dosage: STARTER PACK
     Route: 048
     Dates: start: 201706, end: 2017

REACTIONS (25)
  - Faeces hard [Unknown]
  - Agitation [Unknown]
  - Rash macular [Recovering/Resolving]
  - Diarrhoea [Recovered/Resolved]
  - Muscle spasms [Unknown]
  - Abdominal pain [Not Recovered/Not Resolved]
  - Diarrhoea [Recovered/Resolved]
  - Inguinal hernia [Unknown]
  - Hepatic cirrhosis [Unknown]
  - Insomnia [Unknown]
  - Productive cough [Unknown]
  - Frequent bowel movements [Unknown]
  - Faeces soft [Unknown]
  - Birth mark [Unknown]
  - Flatulence [Recovered/Resolved]
  - Cough [Unknown]
  - Lumbar vertebral fracture [Unknown]
  - Abdominal distension [Unknown]
  - Decreased appetite [Unknown]
  - Hypoaesthesia [Unknown]
  - Back pain [Not Recovered/Not Resolved]
  - Diarrhoea [Recovering/Resolving]
  - Skin discolouration [Unknown]
  - Weight decreased [Unknown]
  - Macule [Unknown]

NARRATIVE: CASE EVENT DATE: 2017
